FAERS Safety Report 11981804 (Version 2)
Quarter: 2016Q2

REPORT INFORMATION
  Report Type: Report from Study
  Country: DE (occurrence: DE)
  Receive Date: 20160201
  Receipt Date: 20160420
  Transmission Date: 20160815
  Serious: Yes (Death, Hospitalization)
  Sender: FDA-Public Use
  Company Number: DE-ROCHE-1696870

PATIENT
  Age: 59 Year
  Sex: Female
  Weight: 55 kg

DRUGS (10)
  1. PACLITAXEL. [Concomitant]
     Active Substance: PACLITAXEL
     Indication: BREAST CANCER
     Route: 042
     Dates: start: 20141222
  2. DOCETAXEL. [Concomitant]
     Active Substance: DOCETAXEL
     Indication: BREAST CANCER
     Route: 042
     Dates: start: 20150318
  3. METAMIZOL [Concomitant]
     Active Substance: METAMIZOLE SODIUM
     Indication: ABDOMINAL PAIN UPPER
     Route: 048
  4. BEVACIZUMAB [Suspect]
     Active Substance: BEVACIZUMAB
     Indication: BREAST CANCER
     Route: 042
     Dates: start: 20141222
  5. GEMCITABINE [Suspect]
     Active Substance: GEMCITABINE\GEMCITABINE HYDROCHLORIDE
     Indication: BREAST CANCER
     Route: 042
     Dates: start: 20160107, end: 20160114
  6. FULVESTRANT [Concomitant]
     Active Substance: FULVESTRANT
     Route: 030
     Dates: start: 20150513, end: 20150914
  7. PROTON PUMP INHIBITOR (UNK INGREDIENTS) [Concomitant]
     Route: 048
     Dates: start: 20141222
  8. BEVACIZUMAB [Suspect]
     Active Substance: BEVACIZUMAB
     Route: 042
     Dates: start: 20150928, end: 20160107
  9. HYDROMORPHONE [Suspect]
     Active Substance: HYDROMORPHONE
     Indication: RIB FRACTURE
     Route: 048
     Dates: start: 20141209, end: 20160128
  10. FULVESTRANT [Concomitant]
     Active Substance: FULVESTRANT
     Indication: BREAST CANCER
     Route: 030
     Dates: start: 20150415, end: 20150429

REACTIONS (1)
  - Large intestinal stenosis [Fatal]

NARRATIVE: CASE EVENT DATE: 20160116
